FAERS Safety Report 5031624-9 (Version None)
Quarter: 2006Q2

REPORT INFORMATION
  Report Type: 
  Country: None (occurrence: None)
  Receive Date: 20060621
  Receipt Date: 20060517
  Transmission Date: 20061013
  Serious: Yes (Hospitalization, Other)
  Sender: FDA-Public Use
  Company Number: JP-BRISTOL-MYERS SQUIBB COMPANY-13384276

PATIENT
  Age: 53 Year
  Sex: Female

DRUGS (7)
  1. ENDOXAN [Suspect]
     Indication: BREAST CANCER
     Route: 041
     Dates: start: 20060502, end: 20060502
  2. FARMORUBICIN [Concomitant]
     Indication: BREAST CANCER
     Dates: start: 20060315, end: 20060502
  3. ZOFRAN [Concomitant]
     Route: 048
     Dates: start: 20060315, end: 20060502
  4. DECADRON [Concomitant]
     Dates: start: 20060315, end: 20060502
  5. PRIMPERAN TAB [Concomitant]
     Dates: start: 20060315, end: 20060502
  6. MAGNESIUM OXIDE [Concomitant]
     Dates: start: 20060315, end: 20060502
  7. CODEINE PHOSPHATE [Concomitant]
     Dates: start: 20060315, end: 20060502

REACTIONS (2)
  - HEADACHE [None]
  - METASTATIC NEOPLASM [None]
